FAERS Safety Report 7918014 (Version 2)
Quarter: 2012Q4

REPORT INFORMATION
  Report Type: 
  Country: US (occurrence: US)
  Receive Date: 20110428
  Receipt Date: 20121031
  Transmission Date: 20130627
  Serious: No
  Sender: FDA-Public Use
  Company Number: US-ASTRAZENECA-2010SE35391

PATIENT
  Age: 40 Year
  Sex: Female

DRUGS (6)
  1. ZOMIG [Suspect]
     Indication: MIGRAINE
     Route: 065
     Dates: start: 2002
  2. BOTOX [Concomitant]
  3. AXERT [Concomitant]
  4. MAXALT [Concomitant]
  5. IMITREX [Concomitant]
  6. OTHER MIGRAINE MEDS [Concomitant]

REACTIONS (2)
  - Migraine [Unknown]
  - Drug ineffective [Unknown]
